FAERS Safety Report 5117699-7 (Version None)
Quarter: 2006Q3

REPORT INFORMATION
  Report Type: 
  Country: None (occurrence: None)
  Receive Date: 20060929
  Receipt Date: 20060714
  Transmission Date: 20061208
  Serious: No
  Sender: FDA-Public Use
  Company Number: US-BRISTOL-MYERS SQUIBB COMPANY-13443486

PATIENT
  Sex: Male

DRUGS (1)
  1. SPRYCEL [Suspect]
     Dates: start: 20060701

REACTIONS (2)
  - DIARRHOEA [None]
  - DYSPNOEA [None]
